FAERS Safety Report 6883097-9 (Version None)
Quarter: 2010Q3

REPORT INFORMATION
  Report Type: 
  Country: None (occurrence: None)
  Receive Date: 20100729
  Receipt Date: 20100401
  Transmission Date: 20110219
  Serious: No
  Sender: FDA-Public Use
  Company Number: US-MYLANLABS-2010S1005658

PATIENT
  Age: 57 Year
  Sex: Female

DRUGS (1)
  1. CIPROFLOXACIN [Suspect]
     Indication: BRONCHITIS
     Route: 048
     Dates: start: 20100326

REACTIONS (3)
  - BACK PAIN [None]
  - MUSCLE SPASMS [None]
  - MYALGIA [None]
